FAERS Safety Report 9471068 (Version 1)
Quarter: 2013Q3

REPORT INFORMATION
  Report Type: Spontaneous
  Country: DE (occurrence: None)
  Receive Date: 20130816
  Receipt Date: 20130816
  Transmission Date: 20140515
  Serious: Yes (Hospitalization)
  Sender: FDA-Public Use
  Company Number: 2013P1017800

PATIENT
  Age: 49 Year
  Sex: Male

DRUGS (4)
  1. TRANYLCYPROMINE [Suspect]
     Indication: DEPRESSION
  2. OLANZAPINE [Concomitant]
  3. PREGABALIN [Concomitant]
  4. METFORMIN [Concomitant]

REACTIONS (13)
  - Depression [None]
  - Depressed mood [None]
  - Fatigue [None]
  - Lethargy [None]
  - Insomnia [None]
  - Rebound effect [None]
  - Merycism [None]
  - Tachycardia [None]
  - Hypertension [None]
  - Suicidal ideation [None]
  - Hypothyroidism [None]
  - Anxiety [None]
  - Drug withdrawal syndrome [None]
